FAERS Safety Report 14349682 (Version 1)
Quarter: 2018Q1

REPORT INFORMATION
  Report Type: Spontaneous
  Country: US (occurrence: US)
  Receive Date: 20180104
  Receipt Date: 20180104
  Transmission Date: 20180509
  Serious: Yes (Life-Threatening, Hospitalization)
  Sender: FDA-Public Use
  Company Number: US-JNJFOC-20171236266

PATIENT
  Age: 61 Year
  Sex: Male

DRUGS (1)
  1. INVOKANA [Suspect]
     Active Substance: CANAGLIFLOZIN
     Indication: TYPE 2 DIABETES MELLITUS
     Route: 048
     Dates: start: 20131112

REACTIONS (7)
  - Toe amputation [Unknown]
  - Osteomyelitis [Unknown]
  - Diabetic foot [Unknown]
  - Diabetic foot infection [Unknown]
  - Toe amputation [Unknown]
  - Osteomyelitis [Unknown]
  - Gas gangrene [Unknown]

NARRATIVE: CASE EVENT DATE: 201410
